FAERS Safety Report 20249265 (Version 1)
Quarter: 2021Q4

REPORT INFORMATION
  Report Type: Spontaneous
  Country: JP (occurrence: JP)
  Receive Date: 20211229
  Receipt Date: 20211229
  Transmission Date: 20220303
  Serious: Yes (Hospitalization)
  Sender: FDA-Public Use
  Company Number: JP-CELGENE-JPN-20211204501

PATIENT
  Age: 7 Decade
  Sex: Male

DRUGS (3)
  1. ISTODAX [Suspect]
     Active Substance: ROMIDEPSIN
     Indication: Peripheral T-cell lymphoma unspecified
     Route: 041
     Dates: start: 20211210, end: 20211210
  2. DEXAMETHASONE [Concomitant]
     Active Substance: DEXAMETHASONE
     Indication: Product used for unknown indication
     Dosage: UNKNOWN
     Route: 041
  3. APREPITANT [Concomitant]
     Active Substance: APREPITANT
     Indication: Product used for unknown indication
     Dosage: UNKNOWN
     Route: 065

REACTIONS (3)
  - Peripheral T-cell lymphoma unspecified [Not Recovered/Not Resolved]
  - Malaise [Recovering/Resolving]
  - Taste disorder [Not Recovered/Not Resolved]

NARRATIVE: CASE EVENT DATE: 20211201
